FAERS Safety Report 18515573 (Version 1)
Quarter: 2020Q4

REPORT INFORMATION
  Report Type: Spontaneous
  Country: US (occurrence: US)
  Receive Date: 20201117
  Receipt Date: 20201117
  Transmission Date: 20210114
  Serious: Yes (Other)
  Sender: FDA-Public Use
  Company Number: None

PATIENT
  Age: 66 Year
  Sex: Female
  Weight: 83.91 kg

DRUGS (12)
  1. LEVOTHYROXINE. [Concomitant]
     Active Substance: LEVOTHYROXINE
  2. CALCIUM-MAGNESIUM [Concomitant]
     Active Substance: CALCIUM\MAGNESIUM
  3. LORATADINE. [Concomitant]
     Active Substance: LORATADINE
  4. FAMOTIDINE. [Concomitant]
     Active Substance: FAMOTIDINE
  5. TART CHERRY JUICE [Concomitant]
  6. PRAVASTATIN. [Concomitant]
     Active Substance: PRAVASTATIN
  7. RECLAST [Suspect]
     Active Substance: ZOLEDRONIC ACID
     Indication: OSTEOPOROSIS
     Dosage: ?          QUANTITY:1 DOSE;OTHER FREQUENCY:ONCE A YEAR;OTHER ROUTE:INFUSION?
     Dates: start: 20201023, end: 20201023
  8. LANTUS [Concomitant]
     Active Substance: INSULIN GLARGINE
  9. HUMALOG [Concomitant]
     Active Substance: INSULIN LISPRO
  10. LASIX [Concomitant]
     Active Substance: FUROSEMIDE
  11. IRON [Concomitant]
     Active Substance: IRON
  12. D-3 [Concomitant]
     Active Substance: CHOLECALCIFEROL

REACTIONS (11)
  - Tremor [None]
  - Pruritus [None]
  - Headache [None]
  - Movement disorder [None]
  - Pain [None]
  - Muscle spasms [None]
  - Swelling face [None]
  - Gait disturbance [None]
  - Nausea [None]
  - Pharyngeal swelling [None]
  - Dysstasia [None]

NARRATIVE: CASE EVENT DATE: 20201023
